FAERS Safety Report 8117983-9 (Version None)
Quarter: 2012Q1

REPORT INFORMATION
  Report Type: 
  Country: None (occurrence: None)
  Receive Date: 20120207
  Receipt Date: 20120126
  Transmission Date: 20120608
  Serious: Yes (Hospitalization)
  Sender: FDA-Public Use
  Company Number: US-SANOFI-AVENTIS-2012SA006350

PATIENT
  Age: 49 Year
  Sex: Male
  Weight: 74 kg

DRUGS (8)
  1. LISINOPRIL [Concomitant]
  2. VARDENAFIL HYDROCHLORIDE (LEVITRA) [Concomitant]
     Dosage: AS NEEDED BEFOR SEXUAL ACTIVITY
  3. HEPARIN [Concomitant]
  4. METFORMIN HCL [Suspect]
     Route: 065
  5. METFORMIN HCL [Suspect]
     Indication: SUICIDE ATTEMPT
     Route: 048
  6. GEMFIBROZIL [Concomitant]
  7. GLYBURIDE [Suspect]
     Indication: SUICIDE ATTEMPT
     Route: 065
  8. GLYBURIDE [Suspect]
     Route: 048

REACTIONS (29)
  - SUICIDE ATTEMPT [None]
  - VERTIGO [None]
  - LACTIC ACIDOSIS [None]
  - RENAL FAILURE ACUTE [None]
  - BLOOD CREATININE INCREASED [None]
  - GLOMERULAR FILTRATION RATE DECREASED [None]
  - DEAFNESS NEUROSENSORY [None]
  - TINNITUS [None]
  - RESPIRATORY DISTRESS [None]
  - DRUG LEVEL INCREASED [None]
  - HYPOTENSION [None]
  - LEUKOCYTOSIS [None]
  - EAR PAIN [None]
  - BLOOD PH DECREASED [None]
  - MEAN ARTERIAL PRESSURE DECREASED [None]
  - NAUSEA [None]
  - ANION GAP INCREASED [None]
  - HYPERNATRAEMIA [None]
  - INTENTIONAL OVERDOSE [None]
  - UNRESPONSIVE TO STIMULI [None]
  - HYPERGLYCAEMIA [None]
  - DIARRHOEA [None]
  - BLOOD GLUCOSE DECREASED [None]
  - BLOOD PRESSURE DECREASED [None]
  - BACTERIAL INFECTION [None]
  - BLOOD LACTIC ACID INCREASED [None]
  - PYREXIA [None]
  - THROMBOCYTOPENIA [None]
  - HYPOGLYCAEMIA [None]
